FAERS Safety Report 10120682 (Version 2)
Quarter: 2014Q2

REPORT INFORMATION
  Report Type: Report from Study
  Country: DE (occurrence: DE)
  Receive Date: 20140425
  Receipt Date: 20140527
  Transmission Date: 20141212
  Serious: Yes (Death)
  Sender: FDA-Public Use
  Company Number: DE-ACTELION-A-NJ2014-98049

PATIENT
  Age: 72 Year
  Sex: Male

DRUGS (2)
  1. VENTAVIS [Suspect]
     Indication: PULMONARY ARTERIAL HYPERTENSION
     Dosage: 5 MCG, 6 TIMES A DAY
     Route: 055
     Dates: start: 20080919
  2. METOPROLOL [Concomitant]

REACTIONS (1)
  - Pulmonary arterial hypertension [Fatal]
